FAERS Safety Report 6205550-3 (Version None)
Quarter: 2009Q2

REPORT INFORMATION
  Report Type: 
  Country: None (occurrence: None)
  Receive Date: 20090527
  Receipt Date: 20090330
  Transmission Date: 20091009
  Serious: No
  Sender: FDA-Public Use
  Company Number: US-ABBOTT-09P-163-0565742-00

PATIENT
  Sex: Female

DRUGS (8)
  1. SIMCOR [Suspect]
     Indication: DRUG USE FOR UNKNOWN INDICATION
     Dosage: 500MG/20MG
     Dates: start: 20090324, end: 20090329
  2. AVAPRO [Concomitant]
     Indication: DRUG USE FOR UNKNOWN INDICATION
  3. ATENOLOL [Concomitant]
     Indication: DRUG USE FOR UNKNOWN INDICATION
  4. LANOXIN [Concomitant]
     Indication: DRUG USE FOR UNKNOWN INDICATION
  5. GENUMET [Concomitant]
     Indication: DRUG USE FOR UNKNOWN INDICATION
  6. GLYMIPRIDE [Concomitant]
     Indication: DRUG USE FOR UNKNOWN INDICATION
  7. WARFARIN SODIUM [Concomitant]
     Indication: DRUG USE FOR UNKNOWN INDICATION
  8. AMLODIPINE [Concomitant]
     Indication: DRUG USE FOR UNKNOWN INDICATION

REACTIONS (4)
  - ANOREXIA [None]
  - ASTHENIA [None]
  - FEELING HOT [None]
  - PRURITUS [None]
